FAERS Safety Report 6048186-X (Version None)
Quarter: 2009Q1

REPORT INFORMATION
  Report Type: 
  Country: None (occurrence: None)
  Receive Date: 20090123
  Receipt Date: 20090116
  Transmission Date: 20090719
  Serious: Yes (Hospitalization)
  Sender: FDA-Public Use
  Company Number: US-AVENTIS-200910622GDDC

PATIENT
  Sex: Female

DRUGS (18)
  1. TAXOTERE [Suspect]
     Indication: NON-SMALL CELL LUNG CANCER
     Route: 042
     Dates: start: 20090107, end: 20090107
  2. CISPLATIN [Suspect]
     Indication: NON-SMALL CELL LUNG CANCER
     Route: 042
     Dates: start: 20090107, end: 20090107
  3. ATENOLOL [Concomitant]
     Indication: BLOOD PRESSURE
     Dates: start: 20081203
  4. DECADRON [Concomitant]
     Indication: NAUSEA
     Dates: start: 20090106
  5. ASPIRIN [Concomitant]
     Dates: start: 20070101
  6. CALCIUM [Concomitant]
     Dates: start: 20070101
  7. CENTRUM SILVER                     /01292501/ [Concomitant]
     Dosage: DOSE: 1 TABLET
     Dates: start: 20070101
  8. DIOVANE [Concomitant]
     Indication: BLOOD PRESSURE
     Dates: start: 20081208
  9. FOLBEE                             /01502401/ [Concomitant]
     Dosage: DOSE: 1 TABLET
     Dates: start: 20070101
  10. DRUGS USED IN NICOTINE DEPENDENCE [Concomitant]
     Dates: start: 20080601
  11. UNKNOWN DRUG [Concomitant]
     Indication: NAUSEA
     Dosage: DOSE: 1 CAPSULE
     Dates: start: 20090107
  12. AMBIEN [Concomitant]
     Indication: INSOMNIA
     Dates: start: 20090107
  13. COMPAZINE [Concomitant]
     Indication: NAUSEA
     Dates: start: 20090107
  14. EMEND [Concomitant]
     Indication: NAUSEA
     Dates: start: 20090107
  15. ZOFRAN [Concomitant]
     Indication: NAUSEA
     Dates: start: 20090107
  16. STOMATOLOGICALS, MOUTH PREPARATIONS [Concomitant]
     Dosage: DOSE: 5-15
     Dates: start: 20090114
  17. DIFLUCAN [Concomitant]
     Indication: ORAL PAIN
     Dates: start: 20090115
  18. NYSTATIN [Concomitant]
     Indication: ORAL PAIN
     Dosage: DOSE: 5-15
     Dates: start: 20090115

REACTIONS (2)
  - HYPONATRAEMIA [None]
  - NEUTROPENIA [None]
